FAERS Safety Report 6429011-1 (Version None)
Quarter: 2009Q4

REPORT INFORMATION
  Report Type: 
  Country: None (occurrence: None)
  Receive Date: 20091105
  Receipt Date: 20091026
  Transmission Date: 20100525
  Serious: Yes (Other)
  Sender: FDA-Public Use
  Company Number: BR-PFIZER INC-2009288501

PATIENT
  Sex: Male

DRUGS (1)
  1. VIAGRA [Suspect]
     Route: 048

REACTIONS (4)
  - ARRHYTHMIA [None]
  - CIRCUMSTANCE OR INFORMATION CAPABLE OF LEADING TO MEDICATION ERROR [None]
  - FLUSHING [None]
  - HEADACHE [None]
